FAERS Safety Report 8999936 (Version 3)
Quarter: 2013Q2

REPORT INFORMATION
  Report Type: Spontaneous
  Country: JP (occurrence: JP)
  Receive Date: 20130102
  Receipt Date: 20130531
  Transmission Date: 20140414
  Serious: Yes (Death, Life-Threatening, Hospitalization, Other)
  Sender: FDA-Public Use
  Company Number: JP-SANOFI-AVENTIS-2012SA093841

PATIENT
  Age: 66 Year
  Sex: Male
  Weight: 63 kg

DRUGS (27)
  1. TAXOTERE [Suspect]
     Indication: HYPOPHARYNGEAL CANCER
     Route: 042
     Dates: start: 20121030
  2. CISPLATIN [Concomitant]
     Indication: HYPOPHARYNGEAL CANCER
     Route: 042
     Dates: start: 20121030
  3. FLUOROURACIL [Concomitant]
     Indication: HYPOPHARYNGEAL CANCER
     Route: 042
     Dates: start: 20121030, end: 20121105
  4. ALOXI [Concomitant]
  5. EMEND [Concomitant]
     Route: 048
  6. DEXAMETHASONE SODIUM PHOSPHATE [Concomitant]
  7. CEPHADOL [Concomitant]
     Indication: HYPERURICAEMIA
     Dosage: STRENGTH: 25MG
     Route: 048
  8. CEPHADOL [Concomitant]
     Indication: CEREBRAL INFARCTION
     Dosage: STRENGTH: 25MG
     Route: 048
  9. CEPHADOL [Concomitant]
     Indication: HYPERLIPIDAEMIA
     Dosage: STRENGTH: 25MG
     Route: 048
  10. CEPHADOL [Concomitant]
     Indication: BENIGN PROSTATIC HYPERPLASIA
     Dosage: STRENGTH: 25MG
     Route: 048
  11. BUFFERIN /JPN/ [Concomitant]
     Indication: HYPERURICAEMIA
     Route: 048
  12. BUFFERIN /JPN/ [Concomitant]
     Indication: CEREBRAL INFARCTION
     Route: 048
  13. BUFFERIN /JPN/ [Concomitant]
     Indication: HYPERLIPIDAEMIA
     Route: 048
  14. BUFFERIN /JPN/ [Concomitant]
     Indication: BENIGN PROSTATIC HYPERPLASIA
     Route: 048
  15. ZETIA [Concomitant]
     Indication: HYPERURICAEMIA
     Dosage: STRENGTH: 10MG
     Route: 048
  16. ZETIA [Concomitant]
     Indication: CEREBRAL INFARCTION
     Dosage: STRENGTH: 10MG
     Route: 048
  17. ZETIA [Concomitant]
     Indication: HYPERLIPIDAEMIA
     Dosage: STRENGTH: 10MG
     Route: 048
  18. ZETIA [Concomitant]
     Indication: BENIGN PROSTATIC HYPERPLASIA
     Dosage: STRENGTH: 10MG
     Route: 048
  19. EPL CAP. [Concomitant]
     Dosage: STRENGTH: 250MG
     Route: 048
  20. EVIPROSTAT [Concomitant]
     Indication: HYPERURICAEMIA
     Route: 048
  21. EVIPROSTAT [Concomitant]
     Indication: CEREBRAL INFARCTION
     Route: 048
  22. EVIPROSTAT [Concomitant]
     Indication: HYPERLIPIDAEMIA
     Route: 048
  23. EVIPROSTAT [Concomitant]
     Indication: BENIGN PROSTATIC HYPERPLASIA
     Route: 048
  24. HARNAL D [Concomitant]
     Indication: HYPERURICAEMIA
     Route: 048
  25. HARNAL D [Concomitant]
     Indication: CEREBRAL INFARCTION
     Route: 048
  26. HARNAL D [Concomitant]
     Indication: HYPERLIPIDAEMIA
     Route: 048
  27. HARNAL D [Concomitant]
     Indication: BENIGN PROSTATIC HYPERPLASIA
     Route: 048

REACTIONS (7)
  - Tracheal haemorrhage [Fatal]
  - Ileus paralytic [Not Recovered/Not Resolved]
  - Sepsis [Recovering/Resolving]
  - Febrile neutropenia [Recovering/Resolving]
  - Disseminated intravascular coagulation [Unknown]
  - Renal impairment [Recovering/Resolving]
  - Hepatic function abnormal [Recovering/Resolving]
